FAERS Safety Report 5311107-9 (Version None)
Quarter: 2007Q2

REPORT INFORMATION
  Report Type: 
  Country: None (occurrence: None)
  Receive Date: 20070426
  Receipt Date: 20070426
  Transmission Date: 20071010
  Serious: Yes (Hospitalization)
  Sender: FDA-Public Use
  Company Number: None

PATIENT
  Age: 74 Year
  Sex: Male
  Weight: 70.7611 kg

DRUGS (5)
  1. DOCETAXEL 20MG/M2 AVENTIS [Suspect]
     Indication: NON-SMALL CELL LUNG CANCER
     Dosage: 38 MG Q WK X 7 IV
     Route: 042
     Dates: start: 20040623, end: 20040714
  2. CARBOPLATIN [Suspect]
     Indication: NON-SMALL CELL LUNG CANCER
     Dosage: 214 MG Q WK X 7 IV
     Route: 042
  3. GLIPIZIDE [Concomitant]
  4. GLUCOPHAGE [Concomitant]
  5. LOVENOX [Concomitant]

REACTIONS (3)
  - HYPOGLYCAEMIA [None]
  - HYPOXIA [None]
  - PLEURAL EFFUSION [None]
